FAERS Safety Report 9001745 (Version 1)
Quarter: 2013Q1

REPORT INFORMATION
  Report Type: Spontaneous
  Country: AT (occurrence: AT)
  Receive Date: 20130107
  Receipt Date: 20130107
  Transmission Date: 20140127
  Serious: Yes (Hospitalization)
  Sender: FDA-Public Use
  Company Number: AT-JNJFOC-20130102767

PATIENT
  Age: 71 Year
  Sex: Female

DRUGS (5)
  1. REMICADE [Suspect]
     Indication: PUSTULAR PSORIASIS
     Route: 042
     Dates: start: 20121029
  2. REMICADE [Suspect]
     Indication: PUSTULAR PSORIASIS
     Route: 042
     Dates: start: 20121116
  3. REMICADE [Suspect]
     Indication: PUSTULAR PSORIASIS
     Route: 042
     Dates: start: 20121203
  4. DILTIAZEM HYDROCHLORIDE [Concomitant]
     Route: 048
  5. PANTOLOC [Concomitant]
     Route: 048

REACTIONS (3)
  - Dermatitis exfoliative [Not Recovered/Not Resolved]
  - Pyrexia [Not Recovered/Not Resolved]
  - Infusion related reaction [Not Recovered/Not Resolved]
